FAERS Safety Report 6860358-0 (Version None)
Quarter: 2010Q3

REPORT INFORMATION
  Report Type: 
  Country: None (occurrence: None)
  Receive Date: 20100720
  Receipt Date: 20100715
  Transmission Date: 20110219
  Serious: Yes (Hospitalization)
  Sender: FDA-Public Use
  Company Number: AT-ROCHE-688393

PATIENT
  Sex: Female
  Weight: 57 kg

DRUGS (6)
  1. PEGINTERFERON ALFA-2A [Suspect]
     Dosage: MOST RECENT DOSE: 15 APRIL 2010.
     Route: 058
     Dates: start: 20100131
  2. RIBAVIRIN [Suspect]
     Dosage: MOST RECENT DOSE: 16 APRIL 2010, DOSE 200 MG; FREQUENCY: 2-0-3 PER DAY.
     Route: 048
     Dates: start: 20100131
  3. PANTOPRAZOLE [Concomitant]
     Dates: start: 20100131
  4. THOMAPYRIN [Concomitant]
     Dosage: TDD: 0-1
     Dates: start: 20060101
  5. PASSEDAN [Concomitant]
     Dosage: TDD: 0-20 GTT
     Dates: start: 20100131
  6. PARACETAMOL [Concomitant]
     Dosage: TDD: 0-1
     Dates: start: 20060208

REACTIONS (2)
  - METRORRHAGIA [None]
  - VAGINAL HAEMORRHAGE [None]
